FAERS Safety Report 20678198 (Version 1)
Quarter: 2022Q2

REPORT INFORMATION
  Report Type: Spontaneous
  Country: US (occurrence: None)
  Receive Date: 20220404
  Receipt Date: 20220404
  Transmission Date: 20220721
  Serious: Yes (Hospitalization)
  Sender: FDA-Public Use
  Company Number: None

PATIENT
  Age: 62 Year
  Sex: Female

DRUGS (1)
  1. CAPECITABINE [Suspect]
     Active Substance: CAPECITABINE
     Dosage: FREQUENCY : TWICE A DAY;?
     Route: 048
     Dates: start: 2021

REACTIONS (8)
  - Hypoxia [None]
  - Hypervolaemia [None]
  - Cardiac failure congestive [None]
  - Pneumonia [None]
  - Chronic obstructive pulmonary disease [None]
  - Vomiting [None]
  - Off label use [None]
  - Weight decreased [None]

NARRATIVE: CASE EVENT DATE: 20220321
